FAERS Safety Report 7320010-4 (Version None)
Quarter: 2011Q1

REPORT INFORMATION
  Report Type: 
  Country: None (occurrence: None)
  Receive Date: 20110228
  Receipt Date: 20110221
  Transmission Date: 20110831
  Serious: Yes (Other)
  Sender: FDA-Public Use
  Company Number: US-B.I. PHARMACEUTICALS,INC./RIDGEFIELD-2011-BP-01085BP

PATIENT
  Sex: Female

DRUGS (7)
  1. LEVETIRACETAM [Concomitant]
  2. PRADAXA [Suspect]
     Indication: ATRIAL FIBRILLATION
  3. METOPROLOL [Concomitant]
  4. PRADAXA [Suspect]
     Indication: THROMBOSIS
     Dosage: 300 MG
     Route: 048
     Dates: start: 20101201, end: 20110107
  5. HYDROCHLORAT [Concomitant]
     Dosage: 12.5 MG
  6. PRAVASTATIN [Concomitant]
     Dosage: 40 MG
  7. VITAMIN D [Concomitant]

REACTIONS (4)
  - NECK PAIN [None]
  - CEREBRAL HAEMORRHAGE [None]
  - ANGER [None]
  - PAIN [None]
